FAERS Safety Report 8026187-X (Version None)
Quarter: 2012Q1

REPORT INFORMATION
  Report Type: 
  Country: None (occurrence: None)
  Receive Date: 20120105
  Receipt Date: 20110208
  Transmission Date: 20120608
  Serious: No
  Sender: FDA-Public Use
  Company Number: US-ABBOTT-11P-163-0704730-00

PATIENT
  Age: 92 Year
  Sex: Female

DRUGS (2)
  1. SYNTHROID [Suspect]
     Indication: HYPOTHYROIDISM
  2. SYNTHROID [Suspect]

REACTIONS (3)
  - MEDICATION ERROR [None]
  - HALLUCINATION [None]
  - BLOOD THYROID STIMULATING HORMONE INCREASED [None]
